FAERS Safety Report 14567214 (Version 1)
Quarter: 2018Q1

REPORT INFORMATION
  Report Type: Spontaneous
  Country: US (occurrence: US)
  Receive Date: 20180223
  Receipt Date: 20180223
  Transmission Date: 20180509
  Serious: No
  Sender: FDA-Public Use
  Company Number: US-TEVA-2018-US-853702

PATIENT
  Age: 87 Year
  Sex: Female

DRUGS (1)
  1. GUAIFENESIN W/PSEUDOEPHEDRINE [Suspect]
     Active Substance: GUAIFENESIN\PSEUDOEPHEDRINE HYDROCHLORIDE
     Indication: NASOPHARYNGITIS
     Dosage: PSEUDOEPHEDRINE HYDROCHLORIDE 60 MG, GUAIFENESIN 600 MG
     Dates: start: 20180116, end: 20180120

REACTIONS (2)
  - Intentional product misuse [Unknown]
  - Drug ineffective [Unknown]
